FAERS Safety Report 8513030-5 (Version None)
Quarter: 2012Q3

REPORT INFORMATION
  Report Type: 
  Country: None (occurrence: None)
  Receive Date: 20120716
  Receipt Date: 20120710
  Transmission Date: 20120928
  Serious: Yes (Life-Threatening, Other)
  Sender: FDA-Public Use
  Company Number: US-ASTRAZENECA-2012SE47550

PATIENT
  Age: 48 Year
  Sex: Female

DRUGS (1)
  1. SEROQUEL XR [Suspect]
     Route: 048

REACTIONS (6)
  - DRUG DOSE OMISSION [None]
  - FACE INJURY [None]
  - ACCIDENT [None]
  - SPINAL FRACTURE [None]
  - AMNESIA [None]
  - POST-TRAUMATIC STRESS DISORDER [None]
